FAERS Safety Report 18881091 (Version 6)
Quarter: 2021Q1

REPORT INFORMATION
  Report Type: Spontaneous
  Country: CZ (occurrence: CZ)
  Receive Date: 20210212
  Receipt Date: 20210317
  Transmission Date: 20210420
  Serious: Yes (Life-Threatening, Other)
  Sender: FDA-Public Use
  Company Number: CZ-AUROBINDO-AUR-APL-2021-005636

PATIENT
  Age: 67 Year
  Sex: Female

DRUGS (16)
  1. FENOFIBRATE. [Suspect]
     Active Substance: FENOFIBRATE
     Indication: DYSLIPIDAEMIA
     Dosage: 215 MILLIGRAM, DAILY
     Route: 048
     Dates: start: 2012
  2. ROSUVASTATIN. [Suspect]
     Active Substance: ROSUVASTATIN
     Indication: DYSLIPIDAEMIA
     Dosage: 20 MILLIGRAM, ONCE A DAY
     Route: 048
     Dates: start: 2010
  3. EZETIMIBE. [Concomitant]
     Active Substance: EZETIMIBE
     Indication: DYSLIPIDAEMIA
     Dosage: UNK
     Route: 065
  4. UBIDECARENONE. [Concomitant]
     Active Substance: UBIDECARENONE
     Indication: MYALGIA
     Dosage: 30 MILLIGRAM, TWO TIMES A DAY
     Route: 065
  5. ATORVASTATIN [Suspect]
     Active Substance: ATORVASTATIN
     Indication: DYSLIPIDAEMIA
     Dosage: 80 MILLIGRAM, ONCE A DAY
     Route: 048
     Dates: start: 2010
  6. BISOPROLOL [Suspect]
     Active Substance: BISOPROLOL
     Indication: DYSLIPIDAEMIA
     Dosage: 5 MILLIGRAM, DAILY
     Route: 048
     Dates: start: 2012
  7. ACETYLSALICYLIC ACID [Concomitant]
     Active Substance: ASPIRIN
     Indication: HYPERTENSION
     Dosage: 100 MILLIGRAM
     Route: 065
     Dates: start: 2012
  8. LEVOTHYROXINE. [Concomitant]
     Active Substance: LEVOTHYROXINE
     Indication: PRODUCT USED FOR UNKNOWN INDICATION
     Dosage: 100 MICROGRAM, ONCE A DAY
     Route: 065
     Dates: start: 2012
  9. UBIDECARENONE. [Concomitant]
     Active Substance: UBIDECARENONE
     Indication: PROPHYLAXIS
  10. SIMVASTATIN  FILM COATED TABLETS [Suspect]
     Active Substance: SIMVASTATIN
     Indication: DYSLIPIDAEMIA
     Dosage: 40 MILLIGRAM, ONCE A DAY
     Route: 048
     Dates: start: 2010
  11. PERINDOPRIL [Suspect]
     Active Substance: PERINDOPRIL
     Indication: DYSLIPIDAEMIA
     Dosage: 5 MILLIGRAM, DAILY
     Route: 048
     Dates: start: 2012
  12. EZETIMIB TABLETS [Suspect]
     Active Substance: EZETIMIBE
     Indication: DYSLIPIDAEMIA
     Dosage: 10 MILLIGRAM
     Route: 065
  13. PERINDOPRIL [Concomitant]
     Active Substance: PERINDOPRIL
     Indication: ACUTE MYOCARDIAL INFARCTION
  14. WARFARIN [Concomitant]
     Active Substance: WARFARIN
     Indication: ANTICOAGULANT THERAPY
     Dosage: UNK
     Route: 065
  15. BISOPROLOL [Concomitant]
     Active Substance: BISOPROLOL
     Indication: HYPERTENSION
     Dosage: 5 MILLIGRAM
     Route: 065
     Dates: start: 2012
  16. PERINDOPRIL [Concomitant]
     Active Substance: PERINDOPRIL
     Indication: HYPERTENSION
     Dosage: 5 MILLIGRAM
     Route: 065
     Dates: start: 2012

REACTIONS (4)
  - Drug ineffective [Recovered/Resolved]
  - Myalgia [Recovered/Resolved]
  - Therapeutic product effect incomplete [Not Recovered/Not Resolved]
  - Drug intolerance [Recovered/Resolved]
